FAERS Safety Report 24066307 (Version 1)
Quarter: 2024Q3

REPORT INFORMATION
  Report Type: Spontaneous
  Country: US (occurrence: US)
  Receive Date: 20240709
  Receipt Date: 20240709
  Transmission Date: 20241017
  Serious: Yes (Death)
  Sender: AMGEN
  Company Number: US-AMGEN-USASP2024133830

PATIENT
  Age: 67 Year
  Sex: Male

DRUGS (4)
  1. INFLIXIMAB [Suspect]
     Active Substance: INFLIXIMAB
     Indication: Diarrhoea
     Dosage: 5 MILLIGRAM/KILOGRAM, WITHIN 1-2 WEEKS
     Route: 042
  2. PREDNISONE [Suspect]
     Active Substance: PREDNISONE
     Indication: Diarrhoea
     Dosage: 60 MILLIGRAM, QD
     Route: 065
  3. MEDROL [Concomitant]
     Active Substance: METHYLPREDNISOLONE
     Indication: Diarrhoea
     Dosage: 24 MILLIGRAM, QD, (SIX 4 MG TABLETS)
     Route: 065
  4. IPILIMUMAB [Concomitant]
     Active Substance: IPILIMUMAB
     Indication: Metastatic malignant melanoma

REACTIONS (2)
  - Metastatic malignant melanoma [Fatal]
  - Off label use [Unknown]
